FAERS Safety Report 8425762-8 (Version None)
Quarter: 2012Q2

REPORT INFORMATION
  Report Type: 
  Country: None (occurrence: None)
  Receive Date: 20120611
  Receipt Date: 20120606
  Transmission Date: 20120825
  Serious: Yes (Death)
  Sender: FDA-Public Use
  Company Number: PHEH2012US011463

PATIENT
  Sex: Female

DRUGS (2)
  1. SANDOSTATIN [Suspect]
  2. AREDIA [Concomitant]

REACTIONS (1)
  - DEATH [None]
